FAERS Safety Report 25101627 (Version 2)
Quarter: 2025Q2

REPORT INFORMATION
  Report Type: Spontaneous
  Country: IT (occurrence: IT)
  Receive Date: 20250320
  Receipt Date: 20250515
  Transmission Date: 20250717
  Serious: Yes (Hospitalization, Other)
  Sender: MYLAN
  Company Number: None

PATIENT
  Age: 59 Year
  Sex: Male
  Weight: 110 kg

DRUGS (12)
  1. VANCOMYCIN [Suspect]
     Active Substance: VANCOMYCIN
     Indication: Antibiotic therapy
     Dosage: 1 GRAM, BID
     Dates: start: 20250211, end: 20250219
  2. VANCOMYCIN [Suspect]
     Active Substance: VANCOMYCIN
     Dosage: 1 GRAM, BID
     Route: 042
     Dates: start: 20250211, end: 20250219
  3. VANCOMYCIN [Suspect]
     Active Substance: VANCOMYCIN
     Dosage: 1 GRAM, BID
     Route: 042
     Dates: start: 20250211, end: 20250219
  4. VANCOMYCIN [Suspect]
     Active Substance: VANCOMYCIN
     Dosage: 1 GRAM, BID
     Dates: start: 20250211, end: 20250219
  5. VANCOMYCIN [Suspect]
     Active Substance: VANCOMYCIN
     Indication: Antibiotic therapy
     Dosage: 2 GRAM, BID
     Dates: start: 20250220, end: 20250228
  6. VANCOMYCIN [Suspect]
     Active Substance: VANCOMYCIN
     Dosage: 2 GRAM, BID
     Route: 042
     Dates: start: 20250220, end: 20250228
  7. VANCOMYCIN [Suspect]
     Active Substance: VANCOMYCIN
     Dosage: 2 GRAM, BID
     Route: 042
     Dates: start: 20250220, end: 20250228
  8. VANCOMYCIN [Suspect]
     Active Substance: VANCOMYCIN
     Dosage: 2 GRAM, BID
     Dates: start: 20250220, end: 20250228
  9. PIPERACILLIN AND TAZOBACTAM [Concomitant]
     Active Substance: PIPERACILLIN SODIUM\TAZOBACTAM SODIUM
     Dosage: 1 DOSAGE FORM, Q8H
     Dates: start: 20250220, end: 20250228
  10. PIPERACILLIN AND TAZOBACTAM [Concomitant]
     Active Substance: PIPERACILLIN SODIUM\TAZOBACTAM SODIUM
     Dosage: 1 DOSAGE FORM, Q8H
     Route: 065
     Dates: start: 20250220, end: 20250228
  11. PIPERACILLIN AND TAZOBACTAM [Concomitant]
     Active Substance: PIPERACILLIN SODIUM\TAZOBACTAM SODIUM
     Dosage: 1 DOSAGE FORM, Q8H
     Route: 065
     Dates: start: 20250220, end: 20250228
  12. PIPERACILLIN AND TAZOBACTAM [Concomitant]
     Active Substance: PIPERACILLIN SODIUM\TAZOBACTAM SODIUM
     Dosage: 1 DOSAGE FORM, Q8H
     Dates: start: 20250220, end: 20250228

REACTIONS (4)
  - Acute kidney injury [Recovered/Resolved]
  - Rash [Recovered/Resolved]
  - Prescribed overdose [Not Recovered/Not Resolved]
  - Medication error [Recovered/Resolved]

NARRATIVE: CASE EVENT DATE: 20250220
